FAERS Safety Report 7597330 (Version 3)
Quarter: 2012Q4

REPORT INFORMATION
  Report Type: 
  Country: US (occurrence: US)
  Receive Date: 20100920
  Receipt Date: 20120913
  Transmission Date: 20130627
  Serious: No
  Sender: FDA-Public Use
  Company Number: US-ASTRAZENECA-2010SE33571

PATIENT
  Age: 29 Year
  Sex: Female

DRUGS (1)
  1. SEROQUEL [Suspect]
     Indication: BIPOLAR DISORDER
     Route: 048

REACTIONS (8)
  - Malaise [Unknown]
  - Aphagia [Unknown]
  - Feeling of body temperature change [Unknown]
  - Insomnia [Unknown]
  - Adverse drug reaction [Unknown]
  - Anxiety [Unknown]
  - Apathy [Unknown]
  - Drug dose omission [Unknown]
